FAERS Safety Report 4638769-3 (Version None)
Quarter: 2005Q2

REPORT INFORMATION
  Report Type: 
  Country: None (occurrence: None)
  Receive Date: 20050419
  Receipt Date: 20050324
  Transmission Date: 20051028
  Serious: Yes (Hospitalization)
  Sender: FDA-Public Use
  Company Number: US-BRISTOL-MYERS SQUIBB COMPANY-12911012

PATIENT
  Age: 72 Year
  Sex: Male

DRUGS (9)
  1. TEQUIN [Suspect]
     Indication: URINARY TRACT INFECTION
     Route: 048
     Dates: start: 20050316, end: 20050316
  2. LOTREL [Concomitant]
  3. ISOSORBIDE [Concomitant]
  4. ATENOLOL [Concomitant]
  5. PLAVIX [Concomitant]
  6. HYDROCHLOROTHIAZIDE [Concomitant]
  7. CELEBREX [Concomitant]
  8. AMARYL [Concomitant]
  9. EFFEXOR [Concomitant]

REACTIONS (1)
  - HYPOGLYCAEMIA [None]
